FAERS Safety Report 9207434 (Version 1)
Quarter: 2013Q2

REPORT INFORMATION
  Report Type: Report from Study
  Country: CA (occurrence: MX)
  Receive Date: 20130403
  Receipt Date: 20130403
  Transmission Date: 20140414
  Serious: Yes (Death)
  Sender: FDA-Public Use
  Company Number: CA-ROCHE-1178514

PATIENT
  Age: 51 Year
  Sex: Male
  Weight: 78.9 kg

DRUGS (9)
  1. RITUXAN [Suspect]
     Indication: GRANULOMATOSIS WITH POLYANGIITIS
     Route: 042
     Dates: start: 20121227, end: 20130114
  2. PREDNISONE [Suspect]
     Indication: PRODUCT USED FOR UNKNOWN INDICATION
     Route: 065
  3. CRESTOR [Concomitant]
  4. EZETROL [Concomitant]
  5. VITAMIN B12 [Concomitant]
  6. ACETAMINOPHEN [Concomitant]
     Route: 048
     Dates: start: 20121227, end: 20130114
  7. METHYLPREDNISOLONE [Concomitant]
     Route: 042
     Dates: start: 20121227, end: 20130114
  8. CELLCEPT [Concomitant]
  9. DIPHENHYDRAMINE HCL [Concomitant]
     Route: 048
     Dates: start: 20121227, end: 20130114

REACTIONS (4)
  - Lung infection [Fatal]
  - Muscle spasms [Not Recovered/Not Resolved]
  - Cardiac arrest [Fatal]
  - Respiratory distress [Fatal]
